FAERS Safety Report 13363708 (Version 2)
Quarter: 2017Q2

REPORT INFORMATION
  Report Type: Spontaneous
  Country: US (occurrence: US)
  Receive Date: 20170323
  Receipt Date: 20170403
  Transmission Date: 20170830
  Serious: Yes (Hospitalization)
  Sender: FDA-Public Use
  Company Number: US-HORIZON-RAV-0084-2017

PATIENT
  Age: 10 Year
  Sex: Female

DRUGS (1)
  1. RAVICTI [Suspect]
     Active Substance: GLYCEROL PHENYLBUTYRATE
     Indication: ARGININOSUCCINATE SYNTHETASE DEFICIENCY
     Dosage: 2.6 ML THREE TIMES DAILY
     Dates: start: 20160810, end: 20170126

REACTIONS (1)
  - Ammonia increased [Recovered/Resolved]

NARRATIVE: CASE EVENT DATE: 20170122
